FAERS Safety Report 18174315 (Version 2)
Quarter: 2020Q3

REPORT INFORMATION
  Report Type: Report from Study
  Country: HU (occurrence: HU)
  Receive Date: 20200820
  Receipt Date: 20200925
  Transmission Date: 20201103
  Serious: Yes (Death)
  Sender: FDA-Public Use
  Company Number: NVSC2020HU229380

PATIENT
  Age: 59 Year
  Sex: Female

DRUGS (1)
  1. ZARZIO [Suspect]
     Active Substance: FILGRASTIM
     Indication: FEBRILE NEUTROPENIA
     Dosage: 1 DF, QD
     Route: 058
     Dates: start: 20200519

REACTIONS (1)
  - Death [Fatal]

NARRATIVE: CASE EVENT DATE: 20200708
